FAERS Safety Report 23705779 (Version 1)
Quarter: 2024Q2

REPORT INFORMATION
  Report Type: Spontaneous
  Country: CN (occurrence: CN)
  Receive Date: 20240404
  Receipt Date: 20240404
  Transmission Date: 20240716
  Serious: Yes (Other)
  Sender: FDA-Public Use
  Company Number: CN-ABBVIE-5704855

PATIENT
  Age: 53 Year
  Sex: Female
  Weight: 76 kg

DRUGS (4)
  1. VENETOCLAX [Suspect]
     Active Substance: VENETOCLAX
     Indication: Acute myeloid leukaemia
     Dosage: 400 MILLIGRAM?400 MG D3-28
     Route: 048
     Dates: start: 20240306, end: 20240401
  2. VENETOCLAX [Suspect]
     Active Substance: VENETOCLAX
     Indication: Acute myeloid leukaemia
     Dosage: 200 MILLIGRAM?200 MG D2
     Route: 048
     Dates: start: 20240305, end: 20240305
  3. VENETOCLAX [Suspect]
     Active Substance: VENETOCLAX
     Indication: Acute myeloid leukaemia
     Dosage: 100 MILLIGRAM?100 MG D1
     Route: 048
     Dates: start: 20240304, end: 20240304
  4. AZACITIDINE [Suspect]
     Active Substance: AZACITIDINE
     Indication: Leukaemia
     Dosage: 100 MILLIGRAM?AZACITIDINE INJECTION (G)?AZACITIDINE 100 MG D1-3
     Route: 058
     Dates: start: 20240304, end: 20240306

REACTIONS (1)
  - Myelosuppression [Unknown]

NARRATIVE: CASE EVENT DATE: 20240320
